FAERS Safety Report 24759960 (Version 2)
Quarter: 2025Q1

REPORT INFORMATION
  Report Type: Spontaneous
  Country: CN (occurrence: CN)
  Receive Date: 20241220
  Receipt Date: 20250106
  Transmission Date: 20250408
  Serious: Yes (Hospitalization)
  Sender: BAXTER
  Company Number: CN-BAXTER-2024BAX029567

PATIENT
  Age: 17 Day
  Sex: Male

DRUGS (1)
  1. DEXTROSE [Suspect]
     Active Substance: DEXTROSE MONOHYDRATE
     Route: 041
     Dates: start: 20220413, end: 20220413

REACTIONS (15)
  - Infusion site extravasation [Recovered/Resolved]
  - Tissue injury [Recovered/Resolved]
  - Infusion site swelling [Recovered/Resolved]
  - Blister [Recovered/Resolved]
  - Skin infection [Recovered/Resolved]
  - Oedema peripheral [Recovered/Resolved]
  - Tissue discolouration [Recovered/Resolved]
  - Skin discolouration [Recovered/Resolved]
  - Eschar [Recovered/Resolved]
  - Erythema [Recovered/Resolved]
  - Skin swelling [Recovered/Resolved]
  - Skin temperature increased [Recovered/Resolved]
  - Decreased immune responsiveness [Recovered/Resolved]
  - Skin necrosis [Recovered/Resolved]
  - Flushing [Recovered/Resolved]

NARRATIVE: CASE EVENT DATE: 20220101
